FAERS Safety Report 6039150-5 (Version None)
Quarter: 2009Q1

REPORT INFORMATION
  Report Type: 
  Country: None (occurrence: None)
  Receive Date: 20090115
  Receipt Date: 20090115
  Transmission Date: 20090719
  Serious: Yes (Other)
  Sender: FDA-Public Use
  Company Number: US-PFIZER INC-2008024204

PATIENT
  Sex: Female
  Weight: 77.1 kg

DRUGS (17)
  1. LYRICA [Suspect]
     Indication: FIBROMYALGIA
     Route: 048
     Dates: start: 20070101
  2. LYRICA [Suspect]
     Indication: NERVE INJURY
  3. ROBAXIN [Concomitant]
  4. BUPRENORPHINE HYDROCHLORIDE/NALOXONE HYDROCHLORIDE [Concomitant]
  5. HYDRODIURIL [Concomitant]
  6. PROTONIX [Concomitant]
  7. CYMBALTA [Concomitant]
  8. CARAFATE [Concomitant]
  9. MOBIC [Concomitant]
  10. ALL OTHER THERAPEUTIC PRODUCTS [Concomitant]
  11. BUSPAR [Concomitant]
  12. RELAXIN [Concomitant]
  13. FLEXERIL [Concomitant]
  14. DIAZEPAM [Concomitant]
  15. LORTAB [Concomitant]
  16. CALCIUM [Concomitant]
  17. DURAGESIC-100 [Concomitant]
     Route: 062

REACTIONS (14)
  - BLOOD POTASSIUM DECREASED [None]
  - BONE PAIN [None]
  - DRUG INEFFECTIVE [None]
  - DYSSTASIA [None]
  - GAIT DISTURBANCE [None]
  - JOINT SWELLING [None]
  - MUSCLE SPASMS [None]
  - OEDEMA PERIPHERAL [None]
  - PAIN [None]
  - TYPE 2 DIABETES MELLITUS [None]
  - VIRAL INFECTION [None]
  - VISUAL ACUITY REDUCED [None]
  - WEIGHT DECREASED [None]
  - WEIGHT INCREASED [None]
